FAERS Safety Report 5535665-4 (Version None)
Quarter: 2007Q4

REPORT INFORMATION
  Report Type: 
  Country: None (occurrence: None)
  Receive Date: 20071206
  Receipt Date: 20070201
  Transmission Date: 20080405
  Serious: Yes (Hospitalization)
  Sender: FDA-Public Use
  Company Number: US-AMGEN-US207688

PATIENT
  Sex: Female
  Weight: 40.9 kg

DRUGS (11)
  1. ENBREL [Suspect]
     Indication: PSORIATIC ARTHROPATHY
     Route: 058
     Dates: start: 20030301
  2. PREMARIN [Concomitant]
     Dates: start: 20000703, end: 20060101
  3. IMITREX [Concomitant]
     Dates: start: 20000703, end: 20060801
  4. FIORINAL [Concomitant]
     Dates: start: 20000703, end: 20060801
  5. PROZAC [Concomitant]
     Dates: start: 20010301, end: 20060801
  6. DYAZIDE [Concomitant]
     Dates: start: 20030601, end: 20060101
  7. ELIDEL [Concomitant]
     Dates: start: 20030901, end: 20060801
  8. ALLEGRA [Concomitant]
     Dates: start: 20031201, end: 20060801
  9. ALTACE [Concomitant]
     Dates: start: 20040501, end: 20050201
  10. PLENDIL [Concomitant]
     Dates: start: 20050501, end: 20060801
  11. SALAGEN [Concomitant]
     Dates: start: 20060101, end: 20060801

REACTIONS (1)
  - BREAST CANCER [None]
